FAERS Safety Report 14914850 (Version 2)
Quarter: 2018Q2

REPORT INFORMATION
  Report Type: Spontaneous
  Country: US (occurrence: US)
  Receive Date: 20180518
  Receipt Date: 20180615
  Transmission Date: 20180711
  Serious: Yes (Hospitalization)
  Sender: FDA-Public Use
  Company Number: US-LEXICON PHARMACEUTICALS, INC-18-1606-00557

PATIENT
  Age: 75 Year
  Sex: Male

DRUGS (5)
  1. LANREOTIDE LAR [Concomitant]
  2. LISINPORIL [Concomitant]
  3. CAPECITABINE. [Concomitant]
     Active Substance: CAPECITABINE
     Dates: end: 201805
  4. TELOTRISTAT ETHYL [Suspect]
     Active Substance: TELOTRISTAT ETHYL
     Indication: CARCINOID SYNDROME
     Route: 048
     Dates: start: 20180330
  5. LISINPORIL [Concomitant]

REACTIONS (3)
  - Hypotension [Not Recovered/Not Resolved]
  - Dehydration [Recovered/Resolved]
  - Decreased appetite [Recovered/Resolved]

NARRATIVE: CASE EVENT DATE: 20180505
